FAERS Safety Report 16204929 (Version 3)
Quarter: 2019Q3

REPORT INFORMATION
  Report Type: Report from Study
  Country: US (occurrence: US)
  Receive Date: 20190416
  Receipt Date: 20190710
  Transmission Date: 20191004
  Serious: Yes (Other)
  Sender: FDA-Public Use
  Company Number: US-GILEAD-2019-0401948

PATIENT
  Age: 83 Year
  Sex: Female

DRUGS (6)
  1. IDELALISIB [Suspect]
     Active Substance: IDELALISIB
     Dosage: 100 MG, BID
     Route: 048
     Dates: start: 201901
  2. ESTER C [ASCORBIC ACID] [Concomitant]
     Active Substance: ASCORBIC ACID
     Indication: UNEVALUABLE EVENT
     Dosage: 1000MG TABLET BY MOUTH DAILY.
     Dates: start: 20190321
  3. DGL [Concomitant]
     Indication: DYSPEPSIA
     Dosage: NOT PROVIDED, PILLS BY MOUTH.
     Route: 048
     Dates: start: 2015
  4. PAPAYA. [Concomitant]
     Active Substance: PAPAYA
     Indication: DYSPEPSIA
     Dosage: NOT PROVIDED, PILLS BY MOUTH.
     Route: 048
     Dates: start: 2015
  5. IDELALISIB [Suspect]
     Active Substance: IDELALISIB
     Indication: CHRONIC LYMPHOCYTIC LEUKAEMIA
     Dosage: 100 MG, BID
     Route: 048
     Dates: start: 20170103
  6. VASELINE [PARAFFIN] [Concomitant]
     Active Substance: PARAFFIN
     Indication: RASH PAPULAR
     Dosage: NOT PROVIDED, APPLIES TOPICALLY TO BOTH CHEEKS AS NEEDED
     Route: 061

REACTIONS (20)
  - Product dose omission [Recovered/Resolved]
  - Energy increased [Not Recovered/Not Resolved]
  - Asthenia [Not Recovered/Not Resolved]
  - Skin lesion [Unknown]
  - Disturbance in attention [Not Recovered/Not Resolved]
  - Mental impairment [Not Recovered/Not Resolved]
  - Medical diet [Not Recovered/Not Resolved]
  - Diarrhoea [Recovered/Resolved]
  - Immune system disorder [Not Recovered/Not Resolved]
  - Diarrhoea [Recovered/Resolved]
  - Rash papular [Not Recovered/Not Resolved]
  - Insomnia [Recovering/Resolving]
  - Fatigue [Not Recovered/Not Resolved]
  - Rash [Not Recovered/Not Resolved]
  - Lesion excision [Unknown]
  - Dyspepsia [Recovering/Resolving]
  - Immune system disorder [Not Recovered/Not Resolved]
  - Anal incontinence [Recovered/Resolved]
  - Cognitive disorder [Not Recovered/Not Resolved]
  - Memory impairment [Not Recovered/Not Resolved]

NARRATIVE: CASE EVENT DATE: 2018
